FAERS Safety Report 8156251-6 (Version None)
Quarter: 2012Q1

REPORT INFORMATION
  Report Type: 
  Country: None (occurrence: None)
  Receive Date: 20120216
  Receipt Date: 20120206
  Transmission Date: 20120608
  Serious: Yes (Other)
  Sender: FDA-Public Use
  Company Number: FK201200322

PATIENT
  Age: 77 Year
  Sex: Male

DRUGS (3)
  1. VANCOMYCIN [Suspect]
     Indication: ENDOCARDITIS
  2. GENTAMICIN [Concomitant]
  3. AMPICILLIN (AMPICILLIN) (AMPICILLIN) [Concomitant]

REACTIONS (2)
  - DRUG ERUPTION [None]
  - LINEAR IGA DISEASE [None]
